FAERS Safety Report 15385618 (Version 2)
Quarter: 2018Q4

REPORT INFORMATION
  Report Type: Spontaneous
  Country: JP (occurrence: JP)
  Receive Date: 20180914
  Receipt Date: 20181018
  Transmission Date: 20190204
  Serious: Yes (Other)
  Sender: FDA-Public Use
  Company Number: PHJP2018JP016111

PATIENT
  Age: 39 Year
  Sex: Male

DRUGS (1)
  1. EVEROLIMUS. [Suspect]
     Active Substance: EVEROLIMUS
     Indication: PANCREATIC NEUROENDOCRINE TUMOUR
     Dosage: UNK
     Route: 048

REACTIONS (3)
  - Papule [Unknown]
  - Second primary malignancy [Unknown]
  - Squamous cell carcinoma of skin [Unknown]
